FAERS Safety Report 19683209 (Version 3)
Quarter: 2021Q3

REPORT INFORMATION
  Report Type: Spontaneous
  Country: US (occurrence: US)
  Receive Date: 20210811
  Receipt Date: 20210906
  Transmission Date: 20211014
  Serious: No
  Sender: FDA-Public Use
  Company Number: US-AMGEN-USASP2021122157

PATIENT
  Age: 66 Year
  Sex: Male
  Weight: 55.8 kg

DRUGS (4)
  1. NEULASTA [Suspect]
     Active Substance: PEGFILGRASTIM
     Indication: NEUTROPENIA
     Dosage: 6 MILLIGRAM
     Route: 065
  2. FOLINIC ACID [Concomitant]
     Active Substance: LEUCOVORIN
     Indication: OESOPHAGEAL ADENOCARCINOMA
     Route: 042
  3. OXALIPLATIN. [Concomitant]
     Active Substance: OXALIPLATIN
     Indication: OESOPHAGEAL ADENOCARCINOMA
     Dosage: UNK
     Route: 042
  4. 5?FU [FLUOROURACIL] [Concomitant]
     Active Substance: FLUOROURACIL
     Indication: OESOPHAGEAL ADENOCARCINOMA
     Dosage: UNK
     Route: 042

REACTIONS (1)
  - Intercepted product preparation error [Unknown]

NARRATIVE: CASE EVENT DATE: 20210716
